FAERS Safety Report 24040101 (Version 1)
Quarter: 2024Q3

REPORT INFORMATION
  Report Type: Spontaneous
  Country: BD (occurrence: BD)
  Receive Date: 20240702
  Receipt Date: 20240702
  Transmission Date: 20241016
  Serious: Yes (Other)
  Sender: ACCORD
  Company Number: BD-Accord-432353

PATIENT
  Age: 32 Year
  Sex: Female

DRUGS (8)
  1. MYCOPHENOLATE SODIUM [Suspect]
     Active Substance: MYCOPHENOLATE SODIUM
     Indication: Immunosuppressant drug therapy
     Dosage: DOSE: 1080MG/DAY, STARTED 2DAYS BEFORE THE TRANSPLANT
     Route: 048
  2. TACROLIMUS [Suspect]
     Active Substance: TACROLIMUS
     Indication: Immunosuppressant drug therapy
     Dosage: DOSE: 0.1MG/KG/DAY, STARTED 2DAYS BEFORE THE TRANSPLANT
  3. METHYLPREDNISOLONE [Suspect]
     Active Substance: METHYLPREDNISOLONE
     Indication: Immunosuppressant drug therapy
     Route: 042
  4. PREDNISOLONE [Suspect]
     Active Substance: PREDNISOLONE
     Indication: Immunosuppressant drug therapy
     Dosage: 20MG/DAY
     Route: 048
  5. Velpatasvir, Sofosbuvir [Concomitant]
     Indication: Antiviral prophylaxis
     Dosage: STRENGTH: SOFUSBUVIR 400 MG,?STRENGTH: VELPATASVIR 100 MG
  6. METHYLPREDNISOLONE [Suspect]
     Active Substance: METHYLPREDNISOLONE
     Indication: Immunosuppressant drug therapy
     Route: 042
  7. METHYLPREDNISOLONE [Suspect]
     Active Substance: METHYLPREDNISOLONE
     Indication: Immunosuppressant drug therapy
     Route: 042
  8. METHYLPREDNISOLONE [Suspect]
     Active Substance: METHYLPREDNISOLONE
     Indication: Immunosuppressant drug therapy
     Dosage: THREE CONSECUTIVE DOSES OF 500MG IV METHYLPREDNISOLONE WERE GIVEN, SUSPECTING ACUTE REJECTION
     Route: 042

REACTIONS (4)
  - Cytomegalovirus infection [Recovered/Resolved]
  - Varicella zoster virus infection [Recovered/Resolved]
  - Trigeminal nerve disorder [Unknown]
  - Post herpetic neuralgia [Unknown]
